FAERS Safety Report 19823918 (Version 1)
Quarter: 2021Q3

REPORT INFORMATION
  Report Type: Spontaneous
  Country: FR (occurrence: FR)
  Receive Date: 20210914
  Receipt Date: 20210914
  Transmission Date: 20211014
  Serious: Yes (Death)
  Sender: FDA-Public Use
  Company Number: FR-ETHYPHARM-2021001323

PATIENT
  Age: 22 Year
  Sex: Male

DRUGS (5)
  1. ALCOOL [Suspect]
     Active Substance: ALCOHOL
  2. BUPRENORPHINE. [Suspect]
     Active Substance: BUPRENORPHINE
  3. OXAZEPAM. [Suspect]
     Active Substance: OXAZEPAM
  4. HEROIN [Suspect]
     Active Substance: DIAMORPHINE
  5. ALPRAZOLAM. [Suspect]
     Active Substance: ALPRAZOLAM

REACTIONS (1)
  - Death [Fatal]
